FAERS Safety Report 6818390-9 (Version None)
Quarter: 2010Q3

REPORT INFORMATION
  Report Type: 
  Country: None (occurrence: None)
  Receive Date: 20100706
  Receipt Date: 20071228
  Transmission Date: 20110219
  Serious: Yes (Other)
  Sender: FDA-Public Use
  Company Number: US-PFIZER INC-2008000013

PATIENT
  Sex: Male
  Weight: 18 kg

DRUGS (6)
  1. ZITHROMAX [Suspect]
     Indication: ANAPHYLACTIC REACTION
     Dosage: 200MG/5ML
     Dates: start: 20071220, end: 20071222
  2. ZITHROMAX [Suspect]
     Indication: HYPERSENSITIVITY
  3. SINGULAIR [Concomitant]
  4. ZYRTEC [Concomitant]
  5. ALL OTHER THERAPEUTIC PRODUCTS [Concomitant]
  6. ALL OTHER THERAPEUTIC PRODUCTS [Concomitant]

REACTIONS (2)
  - HYPERSENSITIVITY [None]
  - URTICARIA [None]
